FAERS Safety Report 11581209 (Version 1)
Quarter: 2015Q4

REPORT INFORMATION
  Report Type: Spontaneous
  Country: US (occurrence: US)
  Receive Date: 20151001
  Receipt Date: 20151001
  Transmission Date: 20160304
  Serious: No
  Sender: FDA-Public Use
  Company Number: US-ROCHE-708574

PATIENT
  Sex: Female
  Weight: 63.5 kg

DRUGS (8)
  1. RIBAVIRIN. [Suspect]
     Active Substance: RIBAVIRIN
     Indication: HEPATITIS C
     Dosage: FREQUENCY: 5 TABLETS DAILY, TAKING FOR 8 WEEKS
     Route: 048
  2. PEGASYS [Suspect]
     Active Substance: PEGINTERFERON ALFA-2A
     Indication: HEPATITIS C
     Dosage: TAKING FOR 8 WEEKS
     Route: 058
  3. VITAMIN D [Concomitant]
     Active Substance: CHOLECALCIFEROL
     Route: 065
  4. VITAMIN B COMPLEX [Concomitant]
     Active Substance: CYANOCOBALAMIN\DEXPANTHENOL\NIACINAMIDE\PYRIDOXINE HYDROCHLORIDE\RIBOFLAVIN 5^-PHOSPHATE SODIUM\THIAMINE HYDROCHLORIDE\VITAMIN B COMPLEX
     Route: 065
  5. MULTIVITAMIN [Concomitant]
     Active Substance: VITAMINS
     Route: 065
  6. FISH OIL [Concomitant]
     Active Substance: FISH OIL
     Route: 065
  7. VITAMIN K [Concomitant]
     Active Substance: PHYTONADIONE
     Route: 065
  8. ALOE VERA [Concomitant]
     Active Substance: ALOE VERA LEAF
     Route: 065

REACTIONS (10)
  - Nausea [Unknown]
  - Anxiety [Unknown]
  - No adverse event [Unknown]
  - Lethargy [Unknown]
  - Confusional state [Unknown]
  - Depression [Unknown]
  - Needle issue [Unknown]
  - Hepatic pain [Unknown]
  - Myalgia [Unknown]
  - Feeling abnormal [Unknown]
